FAERS Safety Report 8882519 (Version 1)
Quarter: 2012Q4

REPORT INFORMATION
  Report Type: Report from Study
  Country: CA (occurrence: CA)
  Receive Date: 20121105
  Receipt Date: 20121105
  Transmission Date: 20130627
  Serious: Yes (Other)
  Sender: FDA-Public Use
  Company Number: CA-JNJFOC-20121014144

PATIENT
  Sex: Male
  Weight: 121 kg

DRUGS (5)
  1. REMICADE [Suspect]
     Indication: CROHN^S DISEASE
     Route: 042
     Dates: start: 20120525
  2. METHOTREXATE [Concomitant]
     Route: 065
  3. CONCERTA [Concomitant]
     Route: 065
  4. RITALIN [Concomitant]
     Route: 065
  5. ALTACE [Concomitant]
     Route: 048

REACTIONS (1)
  - Depression [Not Recovered/Not Resolved]
